FAERS Safety Report 25429951 (Version 1)
Quarter: 2025Q2

REPORT INFORMATION
  Report Type: Spontaneous
  Country: SK (occurrence: SK)
  Receive Date: 20250612
  Receipt Date: 20250612
  Transmission Date: 20250717
  Serious: Yes (Other)
  Sender: MYLAN
  Company Number: SK-002147023-NVSC2025SK087406

PATIENT
  Sex: Female

DRUGS (3)
  1. FINGOLIMOD [Suspect]
     Active Substance: FINGOLIMOD
     Indication: Multiple sclerosis
  2. FINGOLIMOD [Suspect]
     Active Substance: FINGOLIMOD
     Indication: Multiple sclerosis
  3. FINGOLIMOD [Suspect]
     Active Substance: FINGOLIMOD

REACTIONS (4)
  - Multiple sclerosis relapse [Recovering/Resolving]
  - Expanded disability status scale score increased [Unknown]
  - Rebound effect [Unknown]
  - Neurological symptom [Unknown]

NARRATIVE: CASE EVENT DATE: 20170101
